FAERS Safety Report 23175431 (Version 1)
Quarter: 2023Q4

REPORT INFORMATION
  Report Type: Spontaneous
  Country: GR (occurrence: GR)
  Receive Date: 20231113
  Receipt Date: 20231113
  Transmission Date: 20240109
  Serious: Yes (Life-Threatening, Other)
  Sender: FDA-Public Use
  Company Number: None

PATIENT
  Age: 67 Year
  Sex: Male
  Weight: 78 kg

DRUGS (2)
  1. BRIDION [Suspect]
     Active Substance: SUGAMMADEX
     Indication: Hypotonia
     Route: 042
     Dates: start: 20230503, end: 20230503
  2. MORPHINE [Concomitant]
     Active Substance: MORPHINE
     Indication: Postoperative analgesia
     Dosage: 1 MILLIGRAM, QH
     Route: 042
     Dates: start: 20230503, end: 20230503

REACTIONS (2)
  - Hypotension [Recovered/Resolved]
  - Bradycardia [Recovered/Resolved]

NARRATIVE: CASE EVENT DATE: 20230503
